FAERS Safety Report 10978776 (Version 1)
Quarter: 2015Q2

REPORT INFORMATION
  Report Type: Spontaneous
  Country: US (occurrence: US)
  Receive Date: 20150402
  Receipt Date: 20150402
  Transmission Date: 20150821
  Serious: Yes (Hospitalization, Other)
  Sender: FDA-Public Use
  Company Number: US-JNJFOC-20150316053

PATIENT
  Age: 72 Year
  Sex: Female
  Weight: 40.82 kg

DRUGS (6)
  1. TYLENOL [Suspect]
     Active Substance: ACETAMINOPHEN
     Indication: BACK PAIN
     Dosage: 2 TABLETS A DAY WHEN NECESSARY
     Route: 048
     Dates: start: 2013
  2. LYRICA [Suspect]
     Active Substance: PREGABALIN
     Indication: BACK PAIN
     Dosage: AT BED TIME
     Route: 048
     Dates: start: 2013
  3. METOPROLOL [Concomitant]
     Active Substance: METOPROLOL
     Indication: CARDIAC DISORDER
     Dosage: HALF TABLET IN THE MORNING AND HALF TABLET IN THE EVENING.
     Route: 065
  4. POTASSIUM SUPPLEMENT [Concomitant]
     Indication: PRODUCT USED FOR UNKNOWN INDICATION
     Dosage: START DATE: 10/UU/2014
     Route: 048
     Dates: start: 201410
  5. METOPROLOL [Concomitant]
     Active Substance: METOPROLOL
     Indication: BLOOD PRESSURE ABNORMAL
     Dosage: HALF TABLET IN THE MORNING AND HALF TABLET IN THE EVENING.
     Route: 065
  6. XARELTO [Concomitant]
     Active Substance: RIVAROXABAN
     Indication: THROMBOSIS PROPHYLAXIS
     Route: 048
     Dates: start: 201410

REACTIONS (5)
  - Hypotension [Unknown]
  - Cardiac disorder [Unknown]
  - Drug ineffective [Unknown]
  - Malaise [Unknown]
  - Fall [Recovered/Resolved]

NARRATIVE: CASE EVENT DATE: 201410
